FAERS Safety Report 5622908-1 (Version None)
Quarter: 2008Q1

REPORT INFORMATION
  Report Type: 
  Country: None (occurrence: None)
  Receive Date: 20080206
  Receipt Date: 20080121
  Transmission Date: 20080703
  Serious: Yes (Hospitalization)
  Sender: FDA-Public Use
  Company Number: DSA_31348_2008

PATIENT
  Sex: Female

DRUGS (5)
  1. LORAZEPAM [Suspect]
     Dosage: (ORAL)
     Route: 048
     Dates: start: 20080120, end: 20080120
  2. ATOSIL /00133602/ (ATOSIL - ISOPROMETHAZINE HYDROCHLORIDE) [Suspect]
     Dosage: (ORAL)
     Route: 048
     Dates: start: 20080120, end: 20080120
  3. CARBAMAZEPINE [Suspect]
     Dosage: (6800 MG 1X ORAL)
     Route: 048
     Dates: start: 20080120, end: 20080120
  4. LAMOTRIGINE (LAMOTRIGINE) 50 MG [Suspect]
     Dosage: (2500 MG 1X ORAL)
     Route: 048
     Dates: start: 20080120, end: 20080120
  5. PSYQUIL /00046401/ (PSYQUIL - TRIFLUPROMAZINE) [Suspect]
     Dosage: (ORAL)
     Route: 048
     Dates: start: 20080120, end: 20080120

REACTIONS (4)
  - DYSKINESIA [None]
  - MULTIPLE DRUG OVERDOSE INTENTIONAL [None]
  - SUICIDE ATTEMPT [None]
  - VOMITING [None]
